FAERS Safety Report 6264307-8 (Version None)
Quarter: 2009Q3

REPORT INFORMATION
  Report Type: 
  Country: None (occurrence: None)
  Receive Date: 20090710
  Receipt Date: 20090630
  Transmission Date: 20100115
  Serious: Yes (Hospitalization)
  Sender: FDA-Public Use
  Company Number: A0781099A

PATIENT
  Age: 47 Year
  Sex: Female

DRUGS (7)
  1. AVANDIA [Suspect]
     Dosage: 4MG TWICE PER DAY
     Route: 048
     Dates: start: 20040601, end: 20070601
  2. AVANDAMET [Suspect]
     Route: 048
  3. AMARYL [Concomitant]
  4. METOPROLOL [Concomitant]
  5. CRESTOR [Concomitant]
  6. METFORMIN HCL [Concomitant]
     Dates: start: 20050501, end: 20050527
  7. TRICOR [Concomitant]

REACTIONS (3)
  - DECREASED ACTIVITY [None]
  - DYSPNOEA [None]
  - MYOCARDIAL INFARCTION [None]
